FAERS Safety Report 10741002 (Version 3)
Quarter: 2015Q3

REPORT INFORMATION
  Report Type: Spontaneous
  Country: US (occurrence: US)
  Receive Date: 20150127
  Receipt Date: 20150714
  Transmission Date: 20151125
  Serious: Yes (Hospitalization)
  Sender: FDA-Public Use
  Company Number: US-BAYER-2015-010678

PATIENT
  Age: 25 Year
  Sex: Female
  Weight: 111 kg

DRUGS (1)
  1. MIRENA [Suspect]
     Active Substance: LEVONORGESTREL
     Indication: CONTRACEPTION
     Dosage: 20 MCG/24HR, CONT
     Route: 015
     Dates: start: 201110, end: 201112

REACTIONS (6)
  - Genital haemorrhage [None]
  - Uterine perforation [None]
  - Uterine scar [None]
  - Pain [None]
  - Injury [None]
  - Device issue [None]

NARRATIVE: CASE EVENT DATE: 2011
